FAERS Safety Report 18559232 (Version 2)
Quarter: 2020Q4

REPORT INFORMATION
  Report Type: Spontaneous
  Country: NL (occurrence: NL)
  Receive Date: 20201130
  Receipt Date: 20201203
  Transmission Date: 20210114
  Serious: Yes (Death, Other)
  Sender: FDA-Public Use
  Company Number: NL-PFIZER INC-2020460608

PATIENT
  Age: 43 Year
  Sex: Male

DRUGS (2)
  1. GAMMAGLOBULIN [Interacting]
     Active Substance: HUMAN IMMUNOGLOBULIN G
     Dosage: UNK
     Route: 042
  2. PHENYTOIN. [Suspect]
     Active Substance: PHENYTOIN
     Dosage: UNK
     Route: 065

REACTIONS (6)
  - Cardiac arrest [Fatal]
  - Drug interaction [Fatal]
  - Arthralgia [Fatal]
  - Abdominal pain [Fatal]
  - Back pain [Fatal]
  - Hypersensitivity myocarditis [Fatal]
